FAERS Safety Report 7127867-0 (Version None)
Quarter: 2010Q4

REPORT INFORMATION
  Report Type: 
  Country: None (occurrence: None)
  Receive Date: 20101029
  Receipt Date: 20100816
  Transmission Date: 20110411
  Serious: No
  Sender: FDA-Public Use
  Company Number: US-003444

PATIENT
  Sex: Male
  Weight: 77.1115 kg

DRUGS (3)
  1. DEGARELIX 240 MG [Suspect]
     Indication: PROSTATE CANCER
     Dosage: (240 MG 1X SUBCUTANEOUS)
     Route: 058
     Dates: start: 20100729
  2. 5-FU /00098801/ (NOT SPECIFIED) [Suspect]
     Dates: start: 20100722
  3. LEUCOVORIN /00566701/ [Suspect]
     Dates: start: 20100722

REACTIONS (6)
  - DIARRHOEA [None]
  - INJECTION SITE ERYTHEMA [None]
  - INJECTION SITE HAEMATOMA [None]
  - INJECTION SITE INDURATION [None]
  - NAUSEA [None]
  - PROSTATIC SPECIFIC ANTIGEN INCREASED [None]
